FAERS Safety Report 7361440-4 (Version None)
Quarter: 2011Q1

REPORT INFORMATION
  Report Type: 
  Country: None (occurrence: None)
  Receive Date: 20110318
  Receipt Date: 20110315
  Transmission Date: 20110831
  Serious: Yes (Death, Life-Threatening)
  Sender: FDA-Public Use
  Company Number: IT-BAYER-2010-003370

PATIENT
  Sex: Male

DRUGS (4)
  1. NEXAVAR [Suspect]
     Indication: HEPATIC NEOPLASM MALIGNANT
     Dosage: 800 MG, QD
     Route: 048
     Dates: start: 20080828, end: 20081006
  2. DURAGESIC-100 [Concomitant]
  3. LASIX [Concomitant]
  4. ALDACTONE [Concomitant]

REACTIONS (4)
  - DIARRHOEA [None]
  - HYPOTENSION [None]
  - ABDOMINAL PAIN [None]
  - TUMOUR HAEMORRHAGE [None]
